FAERS Safety Report 16406523 (Version 1)
Quarter: 2019Q2

REPORT INFORMATION
  Report Type: Report from Study
  Country: AT (occurrence: AT)
  Receive Date: 20190607
  Receipt Date: 20190607
  Transmission Date: 20190711
  Serious: Yes (Hospitalization)
  Sender: FDA-Public Use
  Company Number: AT-MYLANLABS-2019M1052636

PATIENT
  Age: 42 Year
  Sex: Female
  Weight: 58 kg

DRUGS (32)
  1. FORTECORTIN                        /00016001/ [Concomitant]
     Active Substance: DEXAMETHASONE
     Dosage: ONGOING = CHECKED
     Route: 065
     Dates: start: 20180109
  2. NOVALGIN (METAMIZOLE SODIUM) [Concomitant]
     Active Substance: METAMIZOLE SODIUM
     Indication: PANCREATITIS
     Route: 065
     Dates: start: 20180719, end: 20180719
  3. PERTUZUMAB. [Suspect]
     Active Substance: PERTUZUMAB
     Indication: HER-2 POSITIVE BREAST CANCER
     Dosage: MOST RECENT DOSE PRIOR TO EVENT: 30/JAN/2018
     Route: 042
     Dates: start: 20180109, end: 20180109
  4. TAXOTERE [Suspect]
     Active Substance: DOCETAXEL
     Indication: BREAST CANCER
     Dosage: 75 MILLIGRAM/SQ. METER, Q3W
     Route: 042
     Dates: start: 20180109
  5. FRAGMIN [Concomitant]
     Active Substance: DALTEPARIN SODIUM
     Indication: CHOLELITHIASIS
     Dosage: ONGOING = NOT CHECKED
     Route: 065
     Dates: start: 20180808, end: 20180810
  6. EMEND [Concomitant]
     Active Substance: APREPITANT
     Dosage: ONGOING = CHECKED
     Route: 065
     Dates: start: 20180109
  7. ZOFRAN [Concomitant]
     Active Substance: ONDANSETRON HYDROCHLORIDE
     Dosage: UNK
     Route: 065
     Dates: start: 20180115
  8. UNASYN [Concomitant]
     Active Substance: AMPICILLIN SODIUM\SULBACTAM SODIUM
     Indication: CHOLELITHIASIS
     Dosage: ONGOING = NOT CHECKED
     Route: 065
     Dates: start: 20180808, end: 20180808
  9. NALBUPHINE [Concomitant]
     Active Substance: NALBUPHINE
     Indication: PANCREATITIS
     Dosage: ONGOING = NOT CHECKED
     Route: 065
     Dates: start: 20180719, end: 20180719
  10. ZINNAT                             /00454602/ [Concomitant]
     Active Substance: CEFUROXIME SODIUM
     Indication: PANCREATITIS
     Dosage: ONGOING = NOT CHECKED
     Route: 065
     Dates: start: 20180719, end: 20180805
  11. BUSCOPAN [Concomitant]
     Active Substance: BUTYLSCOPOLAMINE BROMIDE
     Indication: PANCREATITIS
     Dosage: UNK
     Route: 065
     Dates: start: 20180719, end: 20180719
  12. ANAEROBEX [Concomitant]
     Active Substance: METRONIDAZOLE
     Dosage: ONGOING = NOT CHECKED
     Route: 065
     Dates: start: 20180719, end: 20180805
  13. MEXALEN [Concomitant]
     Active Substance: ACETAMINOPHEN
     Dosage: UNK
     Route: 065
     Dates: start: 20180115
  14. ZOFRAN [Concomitant]
     Active Substance: ONDANSETRON HYDROCHLORIDE
     Dosage: UNK
     Route: 065
     Dates: start: 20180109
  15. ZOFRAN [Concomitant]
     Active Substance: ONDANSETRON HYDROCHLORIDE
     Dosage: ONGOING = CHECKED
     Route: 065
     Dates: start: 20180109
  16. ZOLDEM [Concomitant]
     Active Substance: ZOLPIDEM TARTRATE
     Dosage: ONGOING = NOT CHECKED
     Route: 065
     Dates: start: 20180720, end: 20180725
  17. TRASTUZUMAB. [Suspect]
     Active Substance: TRASTUZUMAB
     Indication: HER-2 POSITIVE BREAST CANCER
     Dosage: MOST RECENT DOSE PRIOR TO EVENT: 30/JAN/2018
     Route: 042
     Dates: start: 20180109, end: 20180109
  18. FORTECORTIN                        /00016001/ [Concomitant]
     Active Substance: DEXAMETHASONE
     Dosage: UNK
     Route: 065
     Dates: start: 20180109
  19. EMEND [Concomitant]
     Active Substance: APREPITANT
     Dosage: UNK
     Route: 065
     Dates: start: 20180110
  20. BEPANTHEN                          /00178901/ [Concomitant]
     Active Substance: DEXPANTHENOL
     Route: 065
     Dates: start: 20180115
  21. ANTIFLAT [Concomitant]
     Dosage: ONGOING = NOT CHECKED
     Route: 065
     Dates: start: 20180725, end: 20180728
  22. PASPERTIN                          /00041902/ [Concomitant]
     Active Substance: METOCLOPRAMIDE HYDROCHLORIDE
     Indication: PANCREATITIS
     Route: 065
     Dates: start: 20180719, end: 20180719
  23. DUROTIV [Concomitant]
     Active Substance: ESOMEPRAZOLE
     Dosage: UNK
     Route: 065
     Dates: start: 20180115
  24. XGEVA [Suspect]
     Active Substance: DENOSUMAB
     Indication: BREAST CANCER
     Dosage: 120 MILLIGRAM, Q4W
     Route: 058
     Dates: start: 20180109
  25. LONQUEX [Concomitant]
     Active Substance: LIPEGFILGRASTIM
     Dosage: UNK
     Route: 065
     Dates: start: 20180109
  26. FORLAX [Concomitant]
     Active Substance: POLYETHYLENE GLYCOL 4000
     Route: 065
     Dates: start: 20180115
  27. BUSCAPINE [Concomitant]
     Active Substance: BUTYLSCOPOLAMINE
     Indication: PANCREATITIS
     Route: 065
     Dates: start: 20180719, end: 20180719
  28. NEODOLPASSE [Concomitant]
     Active Substance: DICLOFENAC SODIUM\ORPHENADRINE CITRATE
     Dosage: ONGOING = NOT CHECKED
     Route: 065
     Dates: start: 20180719, end: 20180724
  29. FORTECORTIN                        /00016001/ [Concomitant]
     Active Substance: DEXAMETHASONE
     Dosage: ONGOING = CHECKED
     Route: 065
     Dates: start: 20180109
  30. NEODOLPASSE [Concomitant]
     Active Substance: DICLOFENAC SODIUM\ORPHENADRINE CITRATE
     Indication: CHOLELITHIASIS
     Dosage: ONGOING = NOT CHECKED
     Route: 065
     Dates: start: 20180808, end: 20180809
  31. DIBONDRIN [Concomitant]
     Active Substance: DIPHENHYDRAMINE HYDROCHLORIDE
     Route: 065
     Dates: start: 20180109
  32. KREON [Concomitant]
     Active Substance: PANCRELIPASE
     Dosage: ONGOING = CHECKED
     Route: 065
     Dates: start: 20180720

REACTIONS (1)
  - Pancreatitis [Recovered/Resolved]

NARRATIVE: CASE EVENT DATE: 20180719
